FAERS Safety Report 4622584-0 (Version None)
Quarter: 2005Q1

REPORT INFORMATION
  Report Type: 
  Country: None (occurrence: None)
  Receive Date: 20050328
  Receipt Date: 20050328
  Transmission Date: 20050727
  Serious: No
  Sender: FDA-Public Use
  Company Number: None

PATIENT
  Sex: Female

DRUGS (2)
  1. CARIMMUNE   6%     ZLB [Suspect]
     Indication: DERMATOMYOSITIS
     Dosage: 160GM   50CC/HR  INTRAVENOU
     Route: 042
     Dates: start: 20041201, end: 20050127
  2. CARIMMUNE   6%    ZLB [Suspect]

REACTIONS (2)
  - DEEP VEIN THROMBOSIS [None]
  - INFUSION SITE REACTION [None]
